APPROVED DRUG PRODUCT: AZACTAM IN PLASTIC CONTAINER
Active Ingredient: AZTREONAM
Strength: 20MG/ML
Dosage Form/Route: INJECTABLE;INJECTION
Application: N050632 | Product #002
Applicant: BRISTOL MYERS SQUIBB CO
Approved: May 24, 1989 | RLD: Yes | RS: No | Type: DISCN